FAERS Safety Report 9310156 (Version 1)
Quarter: 2013Q2

REPORT INFORMATION
  Report Type: Spontaneous
  Country: US (occurrence: US)
  Receive Date: 20130527
  Receipt Date: 20130527
  Transmission Date: 20140414
  Serious: No
  Sender: FDA-Public Use
  Company Number: US-B.I. PHARMACEUTICALS,INC./RIDGEFIELD-2013-BI-14473BP

PATIENT
  Sex: Male
  Weight: 83 kg

DRUGS (9)
  1. SPIRIVA [Suspect]
     Indication: CHRONIC OBSTRUCTIVE PULMONARY DISEASE
     Dosage: 18 MCG
     Route: 055
     Dates: start: 2004
  2. PRAMIPEXOLE [Concomitant]
     Indication: RESTLESS LEGS SYNDROME
     Dosage: 1 MG
     Route: 048
  3. DORZOLAMIDE HYDROCHLORIDE OPHTHALMIC SOLUTION [Concomitant]
     Dosage: STRENGTH: 2% SOLUTION; DAILY DOSE: 1 DROP EACH EYE
  4. NEXIUM [Concomitant]
     Indication: GASTROOESOPHAGEAL REFLUX DISEASE
     Dosage: 40 MG
     Route: 048
  5. LOSARTAN/HYDROCHLOROTHIAZIDE [Concomitant]
     Indication: CARDIAC DISORDER
     Dosage: STRENGTH: 50MG / 12.5 MG; DAILY DOSE: 50 MG / 12.5 MG
     Route: 048
  6. METOPROLOL [Concomitant]
     Indication: HYPERTENSION
     Dosage: 12.5 MG
     Route: 048
  7. SERTRALINE [Concomitant]
     Dosage: 100 MG
     Route: 048
  8. CRESTOR [Concomitant]
     Indication: BLOOD CHOLESTEROL INCREASED
     Dosage: 10 MG
     Route: 048
  9. ADVAIR [Concomitant]
     Indication: ASTHMA
     Dosage: ADVAIR: FORMULATION:INHALATION AEROSOL, STRENGTH: 250 MCG / 50 MCG; DAILY DOSE: 500 MCG / 100 MCG
     Route: 055

REACTIONS (1)
  - Macular degeneration [Not Recovered/Not Resolved]
